FAERS Safety Report 13444883 (Version 1)
Quarter: 2017Q2

REPORT INFORMATION
  Report Type: Spontaneous
  Country: SE (occurrence: SE)
  Receive Date: 20170414
  Receipt Date: 20170414
  Transmission Date: 20170830
  Serious: Yes (Hospitalization)
  Sender: FDA-Public Use
  Company Number: SE-TEVA-758973ISR

PATIENT
  Age: 23 Year
  Sex: Male

DRUGS (1)
  1. OLANZAPINE. [Suspect]
     Active Substance: OLANZAPINE
     Route: 065

REACTIONS (3)
  - Akathisia [Not Recovered/Not Resolved]
  - Formication [Not Recovered/Not Resolved]
  - Anxiety [Not Recovered/Not Resolved]
